FAERS Safety Report 7584591-8 (Version None)
Quarter: 2011Q2

REPORT INFORMATION
  Report Type: 
  Country: None (occurrence: None)
  Receive Date: 20110630
  Receipt Date: 20110629
  Transmission Date: 20111010
  Serious: Yes (Hospitalization, Other)
  Sender: FDA-Public Use
  Company Number: SE-PFIZER INC-2011144850

PATIENT
  Age: 35 Year
  Sex: Male

DRUGS (4)
  1. LYRICA [Suspect]
     Dosage: UNK
     Route: 048
     Dates: start: 20110129
  2. CYMBALTA [Concomitant]
     Dosage: UNK
  3. VALDOXAN [Suspect]
     Dosage: 25 MG DAILY
     Route: 048
     Dates: start: 20110421, end: 20110510
  4. LEVOTHYROXINE SODIUM [Concomitant]
     Dosage: UNK

REACTIONS (3)
  - ARTHRALGIA [None]
  - OEDEMA PERIPHERAL [None]
  - JOINT DISLOCATION [None]
